FAERS Safety Report 23522179 (Version 1)
Quarter: 2024Q1

REPORT INFORMATION
  Report Type: Spontaneous
  Country: JP (occurrence: JP)
  Receive Date: 20240214
  Receipt Date: 20240214
  Transmission Date: 20240410
  Serious: Yes (Other)
  Sender: FDA-Public Use
  Company Number: JP-aspen-SDZ2023JP015452AA

PATIENT
  Age: 14 Year
  Sex: Female
  Weight: 48.2 kg

DRUGS (2)
  1. VALACYCLOVIR HYDROCHLORIDE [Suspect]
     Active Substance: VALACYCLOVIR HYDROCHLORIDE
     Indication: Herpes zoster
     Dosage: 3.000 MG/DAY (65 MG/KG/DAY)
     Route: 048
  2. ACETAMINOPHEN [Concomitant]
     Active Substance: ACETAMINOPHEN
     Indication: Product used for unknown indication
     Dosage: 1.200MG/DAY
     Route: 065

REACTIONS (1)
  - Nephropathy toxic [Recovered/Resolved]
